FAERS Safety Report 18203057 (Version 8)
Quarter: 2021Q1

REPORT INFORMATION
  Report Type: Report from Study
  Country: US (occurrence: US)
  Receive Date: 20200827
  Receipt Date: 20210129
  Transmission Date: 20210419
  Serious: Yes (Other)
  Sender: FDA-Public Use
  Company Number: NVSC2020US235934

PATIENT
  Age: 61 Year
  Sex: Female

DRUGS (2)
  1. MAYZENT [Suspect]
     Active Substance: SIPONIMOD
     Indication: RELAPSING-REMITTING MULTIPLE SCLEROSIS
     Dosage: 2 MG, QD
     Route: 048
     Dates: start: 20200831, end: 20200831
  2. MAYZENT [Suspect]
     Active Substance: SIPONIMOD
     Dosage: 2 MG, QD
     Route: 048

REACTIONS (13)
  - Middle ear effusion [Unknown]
  - Lower limb fracture [Not Recovered/Not Resolved]
  - Somnolence [Unknown]
  - Headache [Unknown]
  - Fall [Not Recovered/Not Resolved]
  - Neck pain [Unknown]
  - Facial bones fracture [Not Recovered/Not Resolved]
  - Patella fracture [Not Recovered/Not Resolved]
  - Pain [Unknown]
  - Muscle spasms [Not Recovered/Not Resolved]
  - Joint swelling [Unknown]
  - Central nervous system lesion [Not Recovered/Not Resolved]
  - Arthralgia [Unknown]

NARRATIVE: CASE EVENT DATE: 20200831
